FAERS Safety Report 14905342 (Version 2)
Quarter: 2020Q2

REPORT INFORMATION
  Report Type: Spontaneous
  Country: US (occurrence: US)
  Receive Date: 20180517
  Receipt Date: 20200508
  Transmission Date: 20200713
  Serious: No
  Sender: FDA-Public Use
  Company Number: US-SA-2017SA263432

PATIENT
  Age: 63 Year
  Sex: Female

DRUGS (1)
  1. LANTUS SOLOSTAR [Suspect]
     Active Substance: INSULIN GLARGINE
     Dosage: 30 DF,QD
     Route: 051
     Dates: start: 1982, end: 20171221

REACTIONS (4)
  - Intentional dose omission [Unknown]
  - Blood glucose decreased [Unknown]
  - Therapeutic response decreased [Unknown]
  - Product storage error [Unknown]

NARRATIVE: CASE EVENT DATE: 20171221
